APPROVED DRUG PRODUCT: ORTHO-NOVUM 1/80 21
Active Ingredient: MESTRANOL; NORETHINDRONE
Strength: 0.08MG;1MG
Dosage Form/Route: TABLET;ORAL-21
Application: N016715 | Product #001
Applicant: ORTHO MCNEIL PHARMACEUTICAL INC
Approved: Approved Prior to Jan 1, 1982 | RLD: No | RS: No | Type: DISCN